FAERS Safety Report 6254051-5 (Version None)
Quarter: 2009Q3

REPORT INFORMATION
  Report Type: 
  Country: None (occurrence: None)
  Receive Date: 20090702
  Receipt Date: 20090615
  Transmission Date: 20100115
  Serious: No
  Sender: FDA-Public Use
  Company Number: US-B.I. PHARMACEUTICALS,INC./RIDGEFIELD-2009-BP-07777YA

PATIENT
  Sex: Male

DRUGS (9)
  1. FLOMAX [Suspect]
     Route: 065
  2. VESICARE [Suspect]
     Indication: MICTURITION URGENCY
     Dosage: 5 MG
     Route: 048
     Dates: end: 20090501
  3. ENABLEX [Suspect]
     Route: 065
  4. ASPIRIN [Concomitant]
  5. RAMIPRIL [Concomitant]
  6. TRICOR [Concomitant]
  7. COREG [Concomitant]
  8. ZETIA (CLOPIDOGREL) [Concomitant]
  9. PLAVIX [Concomitant]

REACTIONS (3)
  - ANORECTAL DISORDER [None]
  - CONSTIPATION [None]
  - GASTROINTESTINAL HAEMORRHAGE [None]
